FAERS Safety Report 7485802-X (Version None)
Quarter: 2011Q2

REPORT INFORMATION
  Report Type: 
  Country: None (occurrence: None)
  Receive Date: 20110517
  Receipt Date: 20110107
  Transmission Date: 20111010
  Serious: Yes (Other)
  Sender: FDA-Public Use
  Company Number: US-BAYER-2011-003135

PATIENT
  Sex: Male

DRUGS (5)
  1. LEVITRA [Suspect]
     Indication: ERECTILE DYSFUNCTION
     Dosage: 20 MG, PRN
     Dates: end: 20110105
  2. BENICAR [Concomitant]
  3. TAMSULOSIN HCL [Concomitant]
  4. WELLBUTRIN [Concomitant]
  5. ZOLOFT [Concomitant]

REACTIONS (3)
  - DIZZINESS [None]
  - SYNCOPE [None]
  - HEADACHE [None]
